FAERS Safety Report 9174822 (Version 1)
Quarter: 2013Q1

REPORT INFORMATION
  Report Type: Spontaneous
  Country: US (occurrence: None)
  Receive Date: 20130318
  Receipt Date: 20130318
  Transmission Date: 20140127
  Serious: No
  Sender: FDA-Public Use
  Company Number: 1303SWE006486

PATIENT
  Age: 3 Year
  Sex: Female

DRUGS (1)
  1. CEDAX [Suspect]
     Indication: URINARY TRACT INFECTION
     Dates: start: 20130310

REACTIONS (1)
  - Wrong technique in drug usage process [None]
